FAERS Safety Report 6769593-3 (Version None)
Quarter: 2010Q2

REPORT INFORMATION
  Report Type: 
  Country: None (occurrence: None)
  Receive Date: 20100615
  Receipt Date: 20100615
  Transmission Date: 20101027
  Serious: Yes (Hospitalization)
  Sender: FDA-Public Use
  Company Number: DE-WYE-H02896008

PATIENT
  Sex: Male

DRUGS (9)
  1. SIROLIMUS [Suspect]
     Indication: PROPHYLAXIS AGAINST TRANSPLANT REJECTION
     Route: 048
     Dates: start: 20070201
  2. VESDIL [Suspect]
     Dosage: DOSE AND FREQUENCY NOT SPECIFIED
     Route: 065
  3. CELLCEPT [Suspect]
     Dosage: DOSE AND FREQUENCY NOT SPECIFIED
     Route: 065
  4. CLEXANE [Concomitant]
     Dosage: DOSE AND FREQUENCY NOT SPECIFIED
     Route: 065
  5. URSO FALK [Concomitant]
     Dosage: DOSE AND FREQUENCY NOT SPECIFIED
     Route: 065
  6. IDEOS [Concomitant]
     Dosage: DOSE AND FREQUENCY NOT SPECIFIED
     Route: 065
  7. ACTRAPID MC [Concomitant]
     Dosage: DOSE AND FREQUENCY NOT SPECIFIED
     Route: 065
  8. PANTOZOL [Suspect]
     Dosage: DOSE AND FREQUENCY NOT SPECIFIED
     Route: 065
  9. PREDNISOLONE [Concomitant]
     Dosage: DOSE AND FREQUENCY NOT SPECIFIED
     Route: 065

REACTIONS (1)
  - HEPATIC FIBROSIS [None]
